FAERS Safety Report 24223304 (Version 1)
Quarter: 2024Q3

REPORT INFORMATION
  Report Type: Spontaneous
  Country: US (occurrence: US)
  Receive Date: 20240819
  Receipt Date: 20240819
  Transmission Date: 20241017
  Serious: No
  Sender: ANI
  Company Number: US-ANIPHARMA-2024-US-007652

PATIENT
  Sex: Female

DRUGS (3)
  1. ARIMIDEX [Suspect]
     Active Substance: ANASTROZOLE
     Indication: Product used for unknown indication
     Route: 065
     Dates: start: 20220728
  2. IBRANCE [Suspect]
     Active Substance: PALBOCICLIB
     Dosage: 75MG TABS, 3 WEEKS ON THEN I^M OFF FOR 12-14 DAYS
     Route: 048
     Dates: start: 20220728
  3. ZOMETA [Suspect]
     Active Substance: ZOLEDRONIC ACID
     Dosage: EVERY 3 MONTHS
     Route: 065

REACTIONS (4)
  - Joint stiffness [Not Recovered/Not Resolved]
  - Fatigue [Not Recovered/Not Resolved]
  - Asthenia [Not Recovered/Not Resolved]
  - White blood cell count abnormal [Unknown]
